FAERS Safety Report 13451982 (Version 2)
Quarter: 2017Q3

REPORT INFORMATION
  Report Type: Spontaneous
  Country: US (occurrence: US)
  Receive Date: 20170418
  Receipt Date: 20170811
  Transmission Date: 20171127
  Serious: Yes (Death, Other)
  Sender: FDA-Public Use
  Company Number: US-MALLINCKRODT-T201701492

PATIENT
  Age: 55 Year
  Sex: Male

DRUGS (23)
  1. MELATONIN [Concomitant]
     Active Substance: MELATONIN
  2. PLAQUENIL [Concomitant]
     Active Substance: HYDROXYCHLOROQUINE SULFATE
  3. PROLIA [Concomitant]
     Active Substance: DENOSUMAB
  4. BUPROPION. [Concomitant]
     Active Substance: BUPROPION
  5. TRAMADOL. [Concomitant]
     Active Substance: TRAMADOL
  6. H.P. ACTHAR [Suspect]
     Active Substance: CORTICOTROPIN
     Indication: POLYMYOSITIS
     Dosage: 1 ML, 80 UNITS/ TWICE WEEKLY
     Route: 058
     Dates: start: 20161228
  7. ALLOPURINOL. [Concomitant]
     Active Substance: ALLOPURINOL
  8. ATENOLOL. [Concomitant]
     Active Substance: ATENOLOL
  9. CHLORTAN [Concomitant]
  10. TYLENOL WITH CODEINE [Concomitant]
     Active Substance: ACETAMINOPHEN\CODEINE PHOSPHATE
  11. ASPIRIN. [Concomitant]
     Active Substance: ASPIRIN
  12. FUROSEMIDE. [Concomitant]
     Active Substance: FUROSEMIDE
  13. INVEGA [Concomitant]
     Active Substance: PALIPERIDONE
  14. PREDNISONE. [Concomitant]
     Active Substance: PREDNISONE
  15. GABAPENTIN. [Concomitant]
     Active Substance: GABAPENTIN
  16. LYRICA [Concomitant]
     Active Substance: PREGABALIN
  17. ATORVASTATIN [Concomitant]
     Active Substance: ATORVASTATIN
  18. DOCUSATE [Concomitant]
     Active Substance: DOCUSATE
  19. MAGNESIUM OXIDE. [Concomitant]
     Active Substance: MAGNESIUM OXIDE
  20. METHOTREXATE. [Concomitant]
     Active Substance: METHOTREXATE
  21. PANTOPRAZOLE [Concomitant]
     Active Substance: PANTOPRAZOLE
  22. ZYPREXA [Concomitant]
     Active Substance: OLANZAPINE
  23. TRAZODONE [Concomitant]
     Active Substance: TRAZODONE HYDROCHLORIDE

REACTIONS (2)
  - Death [Fatal]
  - Pancreatic carcinoma [Unknown]

NARRATIVE: CASE EVENT DATE: 20170322
